FAERS Safety Report 17742636 (Version 1)
Quarter: 2020Q2

REPORT INFORMATION
  Report Type: Report from Study
  Country: GB (occurrence: GB)
  Receive Date: 20200504
  Receipt Date: 20200504
  Transmission Date: 20200714
  Serious: Yes (Hospitalization, Other)
  Sender: FDA-Public Use
  Company Number: GB-GILEAD-2020-0463019

PATIENT
  Sex: Female

DRUGS (6)
  1. DOSULEPIN HYDROCHLORIDE [Concomitant]
     Active Substance: DOTHIEPIN HYDROCHLORIDE
  2. FUROSEMIDE. [Concomitant]
     Active Substance: FUROSEMIDE
  3. PROPRANOL [Concomitant]
     Active Substance: PROPRANOLOL HYDROCHLORIDE
  4. METHADONE [Concomitant]
     Active Substance: METHADONE HYDROCHLORIDE
  5. LEDIPASVIR/SOFOSBUVIR [Suspect]
     Active Substance: LEDIPASVIR\SOFOSBUVIR
     Indication: HEPATITIS C
     Dosage: 1 DOSAGE FORM, QD
     Route: 048
     Dates: start: 2020
  6. SPIRONOLACTONE. [Concomitant]
     Active Substance: SPIRONOLACTONE

REACTIONS (5)
  - Hepatic cirrhosis [Not Recovered/Not Resolved]
  - Feeling abnormal [Unknown]
  - Confusional state [Unknown]
  - Circumstance or information capable of leading to medication error [Not Recovered/Not Resolved]
  - Hepatotoxicity [Unknown]

NARRATIVE: CASE EVENT DATE: 20200429
